FAERS Safety Report 4686911-0 (Version None)
Quarter: 2005Q2

REPORT INFORMATION
  Report Type: 
  Country: None (occurrence: None)
  Receive Date: 20050609
  Receipt Date: 20050602
  Transmission Date: 20051028
  Serious: Yes (Life-Threatening, Hospitalization)
  Sender: FDA-Public Use
  Company Number: US-MERCK-0506USA00661

PATIENT
  Age: 62 Year
  Sex: Female

DRUGS (8)
  1. VIOXX [Suspect]
     Indication: ARTHRALGIA
     Route: 048
     Dates: end: 20040901
  2. VIOXX [Suspect]
     Route: 048
     Dates: start: 20010101
  3. VIOXX [Suspect]
     Indication: FIBROMYALGIA
     Route: 048
     Dates: end: 20040901
  4. VIOXX [Suspect]
     Route: 048
     Dates: start: 20010101
  5. CLARINEX [Concomitant]
     Route: 065
  6. [THERAPY UNSPECIFIED] [Concomitant]
     Route: 065
  7. PAXIL [Concomitant]
     Route: 065
  8. CELEXA [Concomitant]
     Route: 065

REACTIONS (1)
  - CONVULSION [None]
